FAERS Safety Report 5629584-2 (Version None)
Quarter: 2008Q1

REPORT INFORMATION
  Report Type: 
  Country: None (occurrence: None)
  Receive Date: 20080218
  Receipt Date: 20080207
  Transmission Date: 20080703
  Serious: Yes (Other)
  Sender: FDA-Public Use
  Company Number: GB-AMGEN-US265037

PATIENT
  Sex: Female
  Weight: 43.4 kg

DRUGS (7)
  1. ENBREL [Suspect]
     Indication: POLYARTHRITIS
     Route: 058
     Dates: start: 20060130
  2. ENBREL [Suspect]
     Dosage: UNKNOWN
     Route: 058
     Dates: start: 20070101
  3. FOLIC ACID [Concomitant]
     Route: 048
     Dates: start: 20040401
  4. PREDNISOLONE [Concomitant]
     Route: 048
     Dates: start: 20040401
  5. IBUPROFEN [Concomitant]
     Route: 048
     Dates: start: 20050301
  6. IBUPROFEN [Concomitant]
     Route: 048
     Dates: start: 20060301
  7. METHOTREXATE [Concomitant]
     Route: 048
     Dates: start: 20050501

REACTIONS (1)
  - PARAESTHESIA ORAL [None]
